FAERS Safety Report 10610691 (Version 5)
Quarter: 2015Q1

REPORT INFORMATION
  Report Type: Report from Study
  Country: BE (occurrence: BE)
  Receive Date: 20141126
  Receipt Date: 20150326
  Transmission Date: 20150720
  Serious: Yes (Hospitalization)
  Sender: FDA-Public Use
  Company Number: BE-CELGENE-BEL-2014112796

PATIENT
  Age: 78 Year
  Sex: Female
  Weight: 87.4 kg

DRUGS (28)
  1. REVLIMID [Suspect]
     Active Substance: LENALIDOMIDE
     Route: 048
     Dates: start: 20140901, end: 20140921
  2. ZOMETA [Concomitant]
     Active Substance: ZOLEDRONIC ACID
     Indication: PROPHYLAXIS
     Route: 065
     Dates: start: 20090622
  3. ZOMETA [Concomitant]
     Active Substance: ZOLEDRONIC ACID
     Route: 048
     Dates: start: 20130603
  4. DUOVENT [Concomitant]
     Active Substance: FENOTEROL HYDROBROMIDE
     Indication: OEDEMA PERIPHERAL
     Route: 055
     Dates: start: 20111128
  5. DEXAMETHASONE. [Suspect]
     Active Substance: DEXAMETHASONE
     Route: 048
     Dates: start: 20141124, end: 20141127
  6. LYRICA [Concomitant]
     Active Substance: PREGABALIN
     Route: 048
     Dates: start: 20091119
  7. OMEPRAZOLE. [Concomitant]
     Active Substance: OMEPRAZOLE
     Route: 048
     Dates: start: 20110712
  8. CARFILZOMIB [Suspect]
     Active Substance: CARFILZOMIB
     Indication: PLASMA CELL MYELOMA
     Route: 065
     Dates: start: 20110627, end: 20110628
  9. DEXAMETHASONE. [Suspect]
     Active Substance: DEXAMETHASONE
     Route: 065
     Dates: start: 20111017, end: 20111107
  10. ASAFLOW [Concomitant]
     Active Substance: ASPIRIN
     Route: 048
     Dates: start: 20121126
  11. BURINEX [Concomitant]
     Active Substance: BUMETANIDE
     Indication: OEDEMA PERIPHERAL
     Route: 048
     Dates: start: 20140610
  12. DEXAMETHASONE. [Suspect]
     Active Substance: DEXAMETHASONE
     Indication: PLASMA CELL MYELOMA
     Route: 065
     Dates: start: 20110627, end: 20111010
  13. CACIT [Concomitant]
     Active Substance: CALCIUM\VITAMIN D
     Indication: OEDEMA PERIPHERAL
     Route: 048
     Dates: start: 20090723
  14. MAGNETOP [Concomitant]
     Indication: MUSCLE SPASMS
     Dosage: 1 SACHET
     Route: 048
     Dates: start: 20130415
  15. MYOLASTAN [Concomitant]
     Active Substance: TETRAZEPAM
     Indication: MUSCLE SPASMS
     Route: 048
     Dates: start: 20140829
  16. ZYRTEC [Concomitant]
     Active Substance: CETIRIZINE HYDROCHLORIDE
     Indication: PRURITUS
     Dosage: 25 MILLIGRAM
     Route: 048
     Dates: start: 20100603
  17. REVLIMID [Suspect]
     Active Substance: LENALIDOMIDE
     Dosage: 2 DOSAGE FORMS
     Route: 048
     Dates: start: 20110627, end: 20110717
  18. CARFILZOMIB [Suspect]
     Active Substance: CARFILZOMIB
     Route: 065
     Dates: start: 20120305, end: 20121113
  19. CARFILZOMIB [Suspect]
     Active Substance: CARFILZOMIB
     Dosage: 1 DOSAGE FORMS
     Route: 065
     Dates: start: 20110704, end: 20120221
  20. DEXAMETHASONE. [Suspect]
     Active Substance: DEXAMETHASONE
     Route: 065
     Dates: start: 20141114
  21. REVLIMID [Suspect]
     Active Substance: LENALIDOMIDE
     Indication: PLASMA CELL MYELOMA
     Route: 048
     Dates: start: 20141013, end: 20141102
  22. LYRICA [Concomitant]
     Active Substance: PREGABALIN
     Indication: NEUROPATHY PERIPHERAL
     Route: 048
     Dates: start: 20031113
  23. MITOSYL [Concomitant]
     Indication: HAEMORRHOIDS
     Dosage: 1 APPLICATION
     Route: 061
     Dates: start: 20140210
  24. ESCITALOPRAM [Concomitant]
     Active Substance: ESCITALOPRAM OXALATE
     Indication: MUSCLE SPASMS
     Route: 048
     Dates: start: 20100630
  25. ASAFLOW [Concomitant]
     Active Substance: ASPIRIN
     Indication: PROPHYLAXIS
     Route: 065
     Dates: start: 20110608
  26. OMEPRAZOLE. [Concomitant]
     Active Substance: OMEPRAZOLE
     Indication: ABDOMINAL PAIN UPPER
     Route: 065
     Dates: start: 20090622
  27. ALDACTONE [Concomitant]
     Active Substance: SPIRONOLACTONE
     Indication: HYPOKALAEMIA
     Route: 048
     Dates: start: 20120123
  28. MULTIGAM [Concomitant]
     Indication: HYPOGAMMAGLOBULINAEMIA
     Route: 041
     Dates: start: 20140829

REACTIONS (1)
  - B precursor type acute leukaemia [Not Recovered/Not Resolved]

NARRATIVE: CASE EVENT DATE: 20141110
